FAERS Safety Report 8586228-8 (Version None)
Quarter: 2012Q3

REPORT INFORMATION
  Report Type: 
  Country: None (occurrence: None)
  Receive Date: 20120810
  Receipt Date: 19981021
  Transmission Date: 20120928
  Serious: Yes (Other)
  Sender: FDA-Public Use
  Company Number: US-ROCHE-1097086

PATIENT
  Age: 46 Year
  Sex: Female

DRUGS (5)
  1. LIDOCAINE [Concomitant]
  2. ASPIRIN [Concomitant]
  3. LOPRESSOR [Concomitant]
  4. DILTIAZEM [Concomitant]
  5. ACTIVASE [Suspect]
     Indication: PRODUCT USED FOR UNKNOWN INDICATION

REACTIONS (3)
  - BRADYCARDIA [None]
  - CARDIOMYOPATHY [None]
  - ILL-DEFINED DISORDER [None]
